FAERS Safety Report 20889999 (Version 5)
Quarter: 2022Q3

REPORT INFORMATION
  Report Type: Report from Study
  Country: DE (occurrence: DE)
  Receive Date: 20220530
  Receipt Date: 20220906
  Transmission Date: 20221027
  Serious: Yes (Death, Life-Threatening, Hospitalization)
  Sender: FDA-Public Use
  Company Number: DE-JNJFOC-20220552808

PATIENT
  Age: 68 Year
  Sex: Male
  Weight: 84 kg

DRUGS (62)
  1. SELEXIPAG [Suspect]
     Active Substance: SELEXIPAG
     Indication: Pulmonary hypertension
     Route: 048
     Dates: start: 20211014, end: 20220517
  2. FUROSEMIDE [Concomitant]
     Active Substance: FUROSEMIDE
     Indication: Diuretic therapy
     Route: 048
     Dates: start: 20150101, end: 20220524
  3. XARELTO [Concomitant]
     Active Substance: RIVAROXABAN
     Indication: Thrombosis prophylaxis
     Route: 048
     Dates: start: 20150101, end: 20220524
  4. ALBUTEROL [Concomitant]
     Active Substance: ALBUTEROL
     Indication: Sarcoidosis
     Route: 055
     Dates: start: 20180101, end: 20220524
  5. ALBUTEROL [Concomitant]
     Active Substance: ALBUTEROL
     Route: 055
     Dates: start: 20220530, end: 20220607
  6. ALLOPURINOL [Concomitant]
     Active Substance: ALLOPURINOL
     Indication: Hyperuricaemia
     Route: 048
     Dates: start: 20200101, end: 20220524
  7. OMEPRAZOLE [Concomitant]
     Active Substance: OMEPRAZOLE
     Indication: Gastrooesophageal reflux disease
     Route: 048
     Dates: start: 20200101, end: 20220524
  8. OMEPRAZOLE [Concomitant]
     Active Substance: OMEPRAZOLE
     Route: 048
     Dates: start: 20220530, end: 20220531
  9. PREDNISOLONE [Concomitant]
     Active Substance: PREDNISOLONE
     Indication: Sarcoidosis
     Route: 048
     Dates: start: 20200301, end: 20220524
  10. PREDNISOLONE [Concomitant]
     Active Substance: PREDNISOLONE
     Route: 042
     Dates: start: 20220517, end: 20220530
  11. PREDNISOLONE [Concomitant]
     Active Substance: PREDNISOLONE
     Route: 042
     Dates: start: 20220530, end: 20220601
  12. PREDNISOLONE [Concomitant]
     Active Substance: PREDNISOLONE
     Route: 042
     Dates: start: 20220602, end: 20220603
  13. PREDNISOLONE [Concomitant]
     Active Substance: PREDNISOLONE
     Route: 042
     Dates: start: 20220603, end: 20220607
  14. RAMIPRIL [Concomitant]
     Active Substance: RAMIPRIL
     Indication: Hypertension
     Route: 048
     Dates: start: 20050101, end: 20220524
  15. RAMIPRIL [Concomitant]
     Active Substance: RAMIPRIL
     Route: 048
     Dates: start: 20220603, end: 20220607
  16. METOPROLOL [Concomitant]
     Active Substance: METOPROLOL
     Indication: Hypertension
     Route: 048
     Dates: start: 20150101, end: 20220524
  17. METOPROLOL [Concomitant]
     Active Substance: METOPROLOL
     Route: 042
     Dates: start: 20220531, end: 20220604
  18. METOPROLOL [Concomitant]
     Active Substance: METOPROLOL
     Route: 048
     Dates: start: 20220604, end: 20220607
  19. IMODIUM [Concomitant]
     Active Substance: LOPERAMIDE HYDROCHLORIDE
     Indication: Diarrhoea
     Dosage: 1-2
     Route: 048
     Dates: start: 20211021, end: 20220524
  20. FOSTER [Concomitant]
     Active Substance: BECLOMETHASONE\FORMOTEROL
     Indication: Bronchitis
     Route: 055
     Dates: start: 20220303, end: 20220524
  21. FOSTER [Concomitant]
     Active Substance: BECLOMETHASONE\FORMOTEROL
     Route: 055
     Dates: start: 20220304
  22. FOSTER [Concomitant]
     Active Substance: BECLOMETHASONE\FORMOTEROL
     Route: 055
     Dates: start: 20220530, end: 20220607
  23. HERBALS [Concomitant]
     Active Substance: HERBALS
     Indication: Bronchitis
     Route: 048
     Dates: start: 20211227, end: 20220524
  24. BROMHEXINE [Concomitant]
     Active Substance: BROMHEXINE
     Indication: Bronchitis
     Route: 048
     Dates: start: 20211227, end: 20220524
  25. SODIUM CHLORIDE [Concomitant]
     Active Substance: SODIUM CHLORIDE
     Indication: Bronchitis
     Route: 055
     Dates: start: 20211227, end: 20220524
  26. IBUPROFEN [Concomitant]
     Active Substance: IBUPROFEN
     Indication: Pain in jaw
     Route: 048
     Dates: start: 20220303, end: 20220524
  27. HEPARIN [Concomitant]
     Active Substance: HEPARIN SODIUM
     Indication: Anticoagulant therapy
     Route: 058
     Dates: start: 20220517, end: 20220530
  28. HEPARIN [Concomitant]
     Active Substance: HEPARIN SODIUM
     Dosage: 5000 (NO UNITS)
     Route: 042
     Dates: start: 20220604, end: 20220607
  29. MORPHINE [Concomitant]
     Active Substance: MORPHINE
     Indication: Disorientation
     Route: 058
     Dates: start: 20220524, end: 20220530
  30. MORPHINE [Concomitant]
     Active Substance: MORPHINE
     Indication: Restlessness
     Route: 042
     Dates: start: 20220604, end: 20220607
  31. PANTOPRAZOLE [Concomitant]
     Active Substance: PANTOPRAZOLE
     Indication: Gastrooesophageal reflux disease
     Route: 042
     Dates: start: 20220524, end: 20220530
  32. PANTOPRAZOLE [Concomitant]
     Active Substance: PANTOPRAZOLE
     Route: 048
     Dates: start: 20220531, end: 20220531
  33. PANTOPRAZOLE [Concomitant]
     Active Substance: PANTOPRAZOLE
     Route: 042
     Dates: start: 20220601, end: 20220607
  34. INSULIN PORK [Concomitant]
     Active Substance: INSULIN PORK\INSULIN PURIFIED PORK
     Indication: Nutritional supplementation
     Route: 058
     Dates: start: 20220524, end: 20220530
  35. INSULIN PORK [Concomitant]
     Active Substance: INSULIN PORK\INSULIN PURIFIED PORK
     Dosage: 2 (NO UNITS)
     Route: 042
     Dates: start: 20220531, end: 20220607
  36. KABIVEN [Concomitant]
     Active Substance: AMINO ACIDS\ANHYDROUS DEXTROSE\CALCIUM CHLORIDE\MAGNESIUM SULFATE HEPTAHYDRATE\POTASSIUM CHLORIDE\SO
     Indication: Nutritional supplementation
     Route: 042
     Dates: start: 20220524, end: 20220530
  37. KABIVEN [Concomitant]
     Active Substance: AMINO ACIDS\ANHYDROUS DEXTROSE\CALCIUM CHLORIDE\MAGNESIUM SULFATE HEPTAHYDRATE\POTASSIUM CHLORIDE\SO
     Route: 042
     Dates: start: 20220530, end: 20220607
  38. JONOSTERIL [CALCIUM ACETATE;MAGNESIUM ACETATE TETRAHYDRATE;POTASSIUM A [Concomitant]
     Indication: Infusion
     Route: 042
     Dates: start: 20220524, end: 20220530
  39. POTASSIUM CHLORIDE [Concomitant]
     Active Substance: POTASSIUM CHLORIDE
     Indication: Infusion
     Route: 042
     Dates: start: 20220530, end: 20220601
  40. OXYGEN [Concomitant]
     Active Substance: OXYGEN
     Indication: Dyspnoea
     Route: 045
     Dates: start: 20220530, end: 20220604
  41. URAPIDIL [Concomitant]
     Active Substance: URAPIDIL
     Indication: Hypertension
     Route: 042
     Dates: start: 20220530, end: 20220606
  42. URAPIDIL [Concomitant]
     Active Substance: URAPIDIL
     Route: 042
     Dates: start: 20220530, end: 20220530
  43. ADDEL N [CHROMIC CHLORIDE;COPPER CHLORIDE DIHYDRATE;FERRIC CHLORIDE HE [Concomitant]
     Indication: Infusion
     Route: 042
     Dates: start: 20220530, end: 20220607
  44. KALIUMCHLORID/GLUCOSE [Concomitant]
     Indication: Infusion
     Route: 042
     Dates: start: 20220530, end: 20220602
  45. KALIUMCHLORID/GLUCOSE [Concomitant]
     Route: 042
     Dates: start: 20220606, end: 20220607
  46. ENOXAPARIN [Concomitant]
     Active Substance: ENOXAPARIN
     Indication: Anticoagulant therapy
     Route: 058
     Dates: start: 20220530, end: 20220604
  47. CARBOHYDRATES\FATTY ACIDS\MINERALS\PROTEIN\VITAMINS [Concomitant]
     Active Substance: CARBOHYDRATES\FATTY ACIDS\MINERALS\PROTEIN\VITAMINS
     Indication: Nutritional supplementation
     Route: 051
     Dates: start: 20220530, end: 20220607
  48. IPRATROPIUMBROMID BMM PHARMA [Concomitant]
     Indication: Sarcoidosis
     Route: 055
     Dates: start: 20220530, end: 20220607
  49. AMLODIPINE [Concomitant]
     Active Substance: AMLODIPINE BESYLATE
     Indication: Hypertension
     Route: 048
     Dates: start: 20220531, end: 20220603
  50. AMLODIPINE [Concomitant]
     Active Substance: AMLODIPINE BESYLATE
     Route: 048
     Dates: start: 20220604, end: 20220607
  51. METOCLOPRAMIDE [Concomitant]
     Active Substance: METOCLOPRAMIDE
     Indication: Nausea
     Route: 042
     Dates: start: 20220531, end: 20220604
  52. DIGITOXIN [Concomitant]
     Active Substance: DIGITOXIN
     Indication: Atrial fibrillation
     Route: 042
     Dates: start: 20220531, end: 20220607
  53. HALOPERIDOL [Concomitant]
     Active Substance: HALOPERIDOL
     Indication: Restlessness
     Route: 042
     Dates: start: 20220601, end: 20220606
  54. FOLIC ACID [Concomitant]
     Active Substance: FOLIC ACID
     Indication: Nutritional supplementation
     Route: 048
     Dates: start: 20220601, end: 20220607
  55. PROMETHAZINE [Concomitant]
     Active Substance: PROMETHAZINE HYDROCHLORIDE
     Indication: Restlessness
     Route: 042
     Dates: start: 20220602, end: 20220603
  56. POLYETHYLENE GLYCOLS [Concomitant]
     Active Substance: POLYETHYLENE GLYCOLS
     Indication: Constipation prophylaxis
     Route: 048
     Dates: start: 20220602, end: 20220607
  57. PROPOFOL [Concomitant]
     Active Substance: PROPOFOL
     Indication: Prophylaxis
     Route: 042
     Dates: start: 20220606, end: 20220606
  58. HYDROCORTISONE [Concomitant]
     Active Substance: HYDROCORTISONE
     Indication: Sarcoidosis
     Route: 042
     Dates: start: 20220606, end: 20220607
  59. SUFENTANIL [Concomitant]
     Active Substance: SUFENTANIL
     Indication: Prophylaxis
     Route: 042
     Dates: start: 20220606, end: 20220607
  60. ETOMIDATE [Concomitant]
     Active Substance: ETOMIDATE
     Indication: Prophylaxis
     Route: 042
     Dates: start: 20220606, end: 20220607
  61. ROCURONIUM [Concomitant]
     Active Substance: ROCURONIUM BROMIDE
     Indication: Prophylaxis
     Route: 042
     Dates: start: 20220606, end: 20220607
  62. KALIUMKLORID [Concomitant]
     Indication: Infusion
     Route: 042
     Dates: start: 20220606, end: 20220607

REACTIONS (3)
  - Right ventricular failure [Fatal]
  - Sepsis [Fatal]
  - Pneumonia [Fatal]

NARRATIVE: CASE EVENT DATE: 20220517
